FAERS Safety Report 5490419-2 (Version None)
Quarter: 2007Q4

REPORT INFORMATION
  Report Type: 
  Country: None (occurrence: None)
  Receive Date: 20071012
  Receipt Date: 20070522
  Transmission Date: 20080405
  Serious: Yes (Hospitalization)
  Sender: FDA-Public Use
  Company Number: CAR-2007-011

PATIENT
  Age: 64 Year
  Sex: Female

DRUGS (2)
  1. MEGESTROL ACETATE [Suspect]
     Indication: DUODENAL ULCER
     Dosage: 1 G, QID, ORAL
     Route: 048
     Dates: start: 20070309, end: 20070312
  2. PANTOPRAZOLE SODIUM [Suspect]
     Indication: DUODENAL ULCER
     Dosage: 80 MG, QD, ORAL
     Route: 048
     Dates: start: 20070101

REACTIONS (1)
  - VOMITING [None]
